FAERS Safety Report 8556364-0 (Version None)
Quarter: 2012Q3

REPORT INFORMATION
  Report Type: 
  Country: None (occurrence: None)
  Receive Date: 20120801
  Receipt Date: 20120723
  Transmission Date: 20120928
  Serious: Yes (Other)
  Sender: FDA-Public Use
  Company Number: PHEH2012US005585

PATIENT
  Sex: Female
  Weight: 11 kg

DRUGS (10)
  1. EXJADE [Suspect]
     Dosage: 250 MG, UNK
     Route: 048
  2. EXJADE [Suspect]
     Dosage: 125 MG, UNK
     Route: 048
  3. ZYRTEC [Concomitant]
     Indication: ECZEMA
     Dosage: 5 MG, DAILY
     Route: 048
  4. EXJADE [Suspect]
     Indication: IRON OVERLOAD
     Dosage: 250 MG, QD
     Route: 048
     Dates: start: 20110903, end: 20120303
  5. ANTIINFLAMMATORY/ANTIRHEUMATIC NON-STEROIDS [Concomitant]
  6. ACETAMINOPHEN [Concomitant]
  7. ZYRTEC [Concomitant]
     Indication: URTICARIA
  8. LACTOBACILLUS [Concomitant]
     Indication: SUPPLEMENTATION THERAPY
     Dosage: 1 DF, DAILY
     Route: 048
  9. PREVACID [Concomitant]
     Indication: GASTRITIS
     Dosage: 7.5 MG, BID
     Route: 048
  10. ALBUTEROL [Concomitant]
     Indication: ASTHMA
     Dosage: 2.5 MG, PRN

REACTIONS (3)
  - DIARRHOEA [None]
  - INFECTIOUS MONONUCLEOSIS [None]
  - TRANSAMINASES INCREASED [None]
